FAERS Safety Report 13259886 (Version 1)
Quarter: 2017Q1

REPORT INFORMATION
  Report Type: Spontaneous
  Country: US (occurrence: US)
  Receive Date: 20170222
  Receipt Date: 20170222
  Transmission Date: 20170428
  Serious: Yes (Death)
  Sender: FDA-Public Use
  Company Number: US-PFIZER INC-2017074875

PATIENT
  Age: 70 Year
  Sex: Female
  Weight: 49.9 kg

DRUGS (9)
  1. PREVACID [Concomitant]
     Active Substance: LANSOPRAZOLE
     Indication: GASTROOESOPHAGEAL REFLUX DISEASE
     Dosage: 30MG DR CAPSULE TWICE A DAY
     Route: 048
     Dates: end: 20170216
  2. VFEND [Suspect]
     Active Substance: VORICONAZOLE
     Indication: FUNGAL INFECTION
     Dosage: 200 MG, UNK
     Route: 048
     Dates: start: 2014, end: 201612
  3. ACYCLOVIR. [Concomitant]
     Active Substance: ACYCLOVIR
     Indication: STEM CELL TRANSPLANT
     Dosage: 800 MG, 2X/DAY
     Route: 048
     Dates: end: 20170216
  4. ZOFRAN [Concomitant]
     Active Substance: ONDANSETRON HYDROCHLORIDE
     Indication: NAUSEA
     Dosage: 8MG EVERY 8 HOURS AS NEEDED
     Route: 048
     Dates: end: 20170216
  5. CASPOFUNGIN [Concomitant]
     Active Substance: CASPOFUNGIN
     Indication: FUNGAL INFECTION
     Dosage: 50 MG, 1X/DAY (50MG IV INFUSION ONCE A DAY)
     Route: 042
     Dates: end: 20170216
  6. INTERFERON ALFA-2B [Suspect]
     Active Substance: INTERFERON ALFA-2B
     Indication: IMMUNE SYSTEM DISORDER
     Dosage: 3 MILLION IU, 1X/DAY
     Dates: start: 20170111, end: 20170130
  7. VFEND [Suspect]
     Active Substance: VORICONAZOLE
     Dosage: 300 MG, 2X/DAY
     Route: 048
     Dates: start: 201612, end: 20170216
  8. LEVOTHYROXINE. [Concomitant]
     Active Substance: LEVOTHYROXINE
     Indication: THYROID HORMONE REPLACEMENT THERAPY
     Dosage: 125 UG, 1X/DAY
     Route: 048
     Dates: end: 20170216
  9. FLONASE [Concomitant]
     Active Substance: FLUTICASONE PROPIONATE
     Indication: SINUS DISORDER
     Dosage: 2 SPRAYS A DAY INH
     Dates: end: 20170216

REACTIONS (1)
  - Septic shock [Fatal]

NARRATIVE: CASE EVENT DATE: 20170216
